FAERS Safety Report 9795545 (Version 2)
Quarter: 2014Q1

REPORT INFORMATION
  Report Type: Spontaneous
  Country: US (occurrence: US)
  Receive Date: 20140103
  Receipt Date: 20140113
  Transmission Date: 20141002
  Serious: Yes (Other)
  Sender: FDA-Public Use
  Company Number: US-JNJFOC-20131216785

PATIENT
  Age: 43 Year
  Sex: Male

DRUGS (2)
  1. CLADRIBINE [Suspect]
     Indication: HAIRY CELL LEUKAEMIA
     Dosage: 2 HOUR INTRAVENOUS INFUSION.
     Route: 042
  2. RITUXIMAB [Suspect]
     Indication: HAIRY CELL LEUKAEMIA
     Dosage: ON DAY 1, 8 WEEKLY DOSES.
     Route: 065

REACTIONS (11)
  - Neutropenia [Unknown]
  - Hypophosphataemia [Unknown]
  - Gamma-glutamyltransferase abnormal [Unknown]
  - Aspartate aminotransferase abnormal [Unknown]
  - Leukopenia [Unknown]
  - Chills [Unknown]
  - Lymphopenia [Unknown]
  - Hypoalbuminaemia [Unknown]
  - Nausea [Unknown]
  - Haematuria [Unknown]
  - Incorrect dose administered [Unknown]
